FAERS Safety Report 23769115 (Version 1)
Quarter: 2024Q2

REPORT INFORMATION
  Report Type: Spontaneous
  Country: US (occurrence: None)
  Receive Date: 20240422
  Receipt Date: 20240422
  Transmission Date: 20240716
  Serious: Yes (Hospitalization)
  Sender: FDA-Public Use
  Company Number: US-FARMAPROD-202404-1330

PATIENT
  Sex: Male
  Weight: 99.88 kg

DRUGS (22)
  1. OXERVATE [Suspect]
     Active Substance: CENEGERMIN-BKBJ
     Indication: Neurotrophic keratopathy
     Route: 047
     Dates: start: 20240304
  2. AMOXAPINE [Concomitant]
     Active Substance: AMOXAPINE
  3. DORZOLAMIDE [Concomitant]
     Active Substance: DORZOLAMIDE
  4. TRAMADOL HCL [Concomitant]
     Active Substance: TRAMADOL HYDROCHLORIDE
  5. PANTOPRAZOLE SODIUM [Concomitant]
     Active Substance: PANTOPRAZOLE SODIUM
  6. OXYGEN [Concomitant]
     Active Substance: OXYGEN
  7. PULMICORT TURBUHALER [Concomitant]
     Active Substance: BUDESONIDE
     Dosage: 0.25 MG / 2 ML AMPULLA WITH NEBULIZER
  8. ASPIRIN [Concomitant]
     Active Substance: ASPIRIN
  9. ALBUTEROL SULFATE [Concomitant]
     Active Substance: ALBUTEROL SULFATE
  10. AMLODIPINE BESYLATE [Concomitant]
     Active Substance: AMLODIPINE BESYLATE
  11. QUETIAPINE FUMARATE [Concomitant]
     Active Substance: QUETIAPINE FUMARATE
  12. CLONIDINE HYDROCHLORIDE [Concomitant]
     Active Substance: CLONIDINE HYDROCHLORIDE
  13. ATORVASTATIN CALCIUM [Concomitant]
     Active Substance: ATORVASTATIN CALCIUM
  14. ELIQUIS [Concomitant]
     Active Substance: APIXABAN
  15. VALACYCLOVIR [Concomitant]
     Active Substance: VALACYCLOVIR HYDROCHLORIDE
  16. RAMELTEON [Concomitant]
     Active Substance: RAMELTEON
  17. MOXIFLOXACIN [Concomitant]
     Active Substance: MOXIFLOXACIN
  18. DORZOLAMIDE [Concomitant]
     Active Substance: DORZOLAMIDE
  19. ZIRGAN [Concomitant]
     Active Substance: GANCICLOVIR
  20. PREDNISOLONE ACETATE [Concomitant]
     Active Substance: PREDNISOLONE ACETATE
  21. ERYTHROMYCIN [Concomitant]
     Active Substance: ERYTHROMYCIN
  22. ATROPINE SULFATE [Concomitant]
     Active Substance: ATROPINE SULFATE

REACTIONS (1)
  - Hospitalisation [Unknown]
